FAERS Safety Report 19084621 (Version 1)
Quarter: 2021Q2

REPORT INFORMATION
  Report Type: Spontaneous
  Country: US (occurrence: US)
  Receive Date: 20210401
  Receipt Date: 20210401
  Transmission Date: 20210717
  Serious: No
  Sender: FDA-Public Use
  Company Number: US-IBSA PHARMA-2020-IBS-00772

PATIENT
  Age: 26 Year
  Weight: 53 kg

DRUGS (2)
  1. FLECTOR [Suspect]
     Active Substance: DICLOFENAC EPOLAMINE
     Indication: OCCIPITAL NEURALGIA
     Dosage: 1.3 PERCENT
     Route: 061
     Dates: end: 202001
  2. FLECTOR [Suspect]
     Active Substance: DICLOFENAC EPOLAMINE
     Indication: DYSTONIA

REACTIONS (4)
  - Off label use [Unknown]
  - Therapeutic product effect incomplete [Recovering/Resolving]
  - Product use in unapproved indication [Unknown]
  - No adverse event [Unknown]

NARRATIVE: CASE EVENT DATE: 201608
